FAERS Safety Report 4870685-4 (Version None)
Quarter: 2006Q1

REPORT INFORMATION
  Report Type: 
  Country: None (occurrence: None)
  Receive Date: 20060103
  Receipt Date: 20051230
  Transmission Date: 20060701
  Serious: Yes (Hospitalization)
  Sender: FDA-Public Use
  Company Number: US-GLAXOSMITHKLINE-A0587319A

PATIENT
  Age: 59 Year
  Sex: Male

DRUGS (6)
  1. COREG [Suspect]
     Indication: HYPERTENSION
     Dosage: 6.25MG PER DAY
     Route: 048
  2. ALTACE [Concomitant]
  3. ACTOS [Concomitant]
  4. METFORMIN [Concomitant]
  5. TRICOR [Concomitant]
  6. CRESTOR [Concomitant]

REACTIONS (2)
  - ALOPECIA [None]
  - PNEUMONIA [None]
